FAERS Safety Report 9764997 (Version 1)
Quarter: 2013Q4

REPORT INFORMATION
  Report Type: Spontaneous
  Country: US (occurrence: US)
  Receive Date: 20131217
  Receipt Date: 20131217
  Transmission Date: 20140711
  Serious: No
  Sender: FDA-Public Use
  Company Number: US-BIOGENIDEC-2013BI116289

PATIENT
  Age: 32 Year
  Sex: Female
  Weight: 58 kg

DRUGS (7)
  1. TECFIDERA [Suspect]
     Indication: PLASMA CELL MYELOMA
     Route: 048
     Dates: start: 201308
  2. TECFIDERA [Suspect]
     Indication: PLASMA CELL MYELOMA
     Route: 048
  3. TECFIDERA [Suspect]
     Indication: PLASMA CELL MYELOMA
  4. ORTHO TRICYCLEN LO [Concomitant]
  5. FISH OIL [Concomitant]
  6. VIT D [Concomitant]
  7. TRIAMCINOLONE [Concomitant]

REACTIONS (5)
  - Gastric disorder [Recovered/Resolved]
  - Rhinorrhoea [Unknown]
  - Off label use [Unknown]
  - Underdose [Unknown]
  - Flushing [Recovered/Resolved]
